FAERS Safety Report 8504263-2 (Version None)
Quarter: 2012Q2

REPORT INFORMATION
  Report Type: 
  Country: None (occurrence: None)
  Receive Date: 20120405
  Receipt Date: 20101027
  Transmission Date: 20120825
  Serious: Yes (Other)
  Sender: FDA-Public Use
  Company Number: PHHY2010US73583

PATIENT
  Sex: Female

DRUGS (1)
  1. RECLAST [Suspect]

REACTIONS (5)
  - PHARYNGEAL OEDEMA [None]
  - BURNING SENSATION [None]
  - PRURITUS [None]
  - URTICARIA [None]
  - BACK PAIN [None]
